FAERS Safety Report 18007274 (Version 2)
Quarter: 2020Q3

REPORT INFORMATION
  Report Type: Spontaneous
  Country: US (occurrence: US)
  Receive Date: 20200710
  Receipt Date: 20200723
  Transmission Date: 20201103
  Serious: No
  Sender: FDA-Public Use
  Company Number: US-VERTEX PHARMACEUTICALS-2020-014417

PATIENT
  Age: 36 Year
  Sex: Male
  Weight: 86 kg

DRUGS (7)
  1. ALBUTEROL [SALBUTAMOL] [Concomitant]
     Active Substance: ALBUTEROL
  2. PULMOZYME [Concomitant]
     Active Substance: DORNASE ALFA
  3. CAYSTON [Concomitant]
     Active Substance: AZTREONAM
  4. TRIKAFTA [Suspect]
     Active Substance: ELEXACAFTOR\IVACAFTOR\TEZACAFTOR
     Indication: CYSTIC FIBROSIS
     Dosage: 100 MG ELEXACAFTOR/ 50 MG TEZACAFTOR/ 75 MG IVACAFTOR; 150MG IVACAFTOR BID
     Route: 048
     Dates: start: 20200422
  5. HYPERSAL [Concomitant]
     Active Substance: SODIUM CHLORIDE
  6. AZITHROMYCIN ANHYDROUS. [Concomitant]
     Active Substance: AZITHROMYCIN ANHYDROUS
  7. TOBRAMYCIN. [Concomitant]
     Active Substance: TOBRAMYCIN

REACTIONS (1)
  - Cystic fibrosis respiratory infection suppression [Unknown]

NARRATIVE: CASE EVENT DATE: 20200616
